FAERS Safety Report 7901230-4 (Version None)
Quarter: 2011Q4

REPORT INFORMATION
  Report Type: 
  Country: None (occurrence: None)
  Receive Date: 20111108
  Receipt Date: 20111028
  Transmission Date: 20120403
  Serious: Yes (Other)
  Sender: FDA-Public Use
  Company Number: PHEH2011US00445

PATIENT
  Sex: Female

DRUGS (18)
  1. XANAX [Concomitant]
  2. INDERAL [Concomitant]
     Dosage: 10 MG, TID
     Route: 048
  3. VIOXX [Concomitant]
     Dosage: 25 MG, QD
  4. AMOXICILLIN [Concomitant]
  5. CLARITIN [Concomitant]
  6. FERROUS SULFATE TAB [Concomitant]
  7. ZOMETA [Suspect]
     Indication: OSTEOPOROSIS
  8. COMPAZINE [Concomitant]
     Dosage: 10 MG, Q6H PRN
  9. FENTANYL [Concomitant]
  10. VITAMIN D [Concomitant]
  11. PREDNISONE [Concomitant]
  12. COLACE [Concomitant]
     Dosage: 100 MG, QD
     Route: 048
  13. ZOMETA [Suspect]
     Indication: MULTIPLE MYELOMA
     Dates: start: 20040101
  14. OXYCONTIN [Concomitant]
     Dosage: 10 MG, Q12H
  15. PROTONIX [Concomitant]
     Dosage: 40 MG, QD
     Route: 048
  16. THALIDOMIDE [Concomitant]
  17. VICODIN [Concomitant]
  18. OSCAL [Concomitant]

REACTIONS (34)
  - CARDIOMEGALY [None]
  - ENDOMETRIOSIS [None]
  - ARRHYTHMIA [None]
  - BONE PAIN [None]
  - GINGIVAL DISORDER [None]
  - EXPOSED BONE IN JAW [None]
  - ANXIETY [None]
  - PARAESTHESIA [None]
  - PAIN IN EXTREMITY [None]
  - SINUS DISORDER [None]
  - PAIN [None]
  - INFECTION [None]
  - OEDEMA [None]
  - TOBACCO ABUSE [None]
  - OSTEOLYSIS [None]
  - PATHOLOGICAL FRACTURE [None]
  - OSTEONECROSIS OF JAW [None]
  - INJURY [None]
  - GASTRITIS [None]
  - GASTROOESOPHAGEAL REFLUX DISEASE [None]
  - MITRAL VALVE PROLAPSE [None]
  - PLEURAL EFFUSION [None]
  - BACK PAIN [None]
  - ARTHRALGIA [None]
  - IRON DEFICIENCY ANAEMIA [None]
  - PHYSICAL DISABILITY [None]
  - DEFORMITY [None]
  - DIVERTICULUM [None]
  - GASTRIC ULCER [None]
  - OSTEOMYELITIS [None]
  - OSTEOPOROSIS [None]
  - ABDOMINAL PAIN [None]
  - MIGRAINE [None]
  - EAR INFECTION [None]
